FAERS Safety Report 10707975 (Version 1)
Quarter: 2015Q1

REPORT INFORMATION
  Report Type: Spontaneous
  Country: FR (occurrence: FR)
  Receive Date: 20150113
  Receipt Date: 20150113
  Transmission Date: 20150721
  Serious: Yes (Hospitalization, Other)
  Sender: FDA-Public Use
  Company Number: FR-PFIZER INC-2015008163

PATIENT
  Age: 28 Year
  Sex: Female
  Weight: 73 kg

DRUGS (4)
  1. NOVORAPID [Concomitant]
     Active Substance: INSULIN ASPART
     Dosage: UNK
  2. XANAX [Suspect]
     Active Substance: ALPRAZOLAM
     Dosage: 0.25 MG, DAILY, AS NEEDED ((BEGINNING OF PREGNANCY)
  3. LANTUS [Concomitant]
     Active Substance: INSULIN GLARGINE
     Dosage: UNK
  4. XEROQUEL [Suspect]
     Active Substance: QUETIAPINE FUMARATE
     Indication: BIPOLAR DISORDER
     Dosage: 400 MG, DAILY

REACTIONS (12)
  - Diabetic retinopathy [Unknown]
  - Blood pressure increased [Unknown]
  - Oedema [Unknown]
  - Threatened labour [Unknown]
  - Diabetes mellitus inadequate control [Unknown]
  - Pre-eclampsia [Unknown]
  - Abnormal weight gain [Unknown]
  - Nephrotic syndrome [Unknown]
  - Proteinuria [Unknown]
  - Diabetic nephropathy [Unknown]
  - Urinary tract infection [Unknown]
  - Dyspnoea [Unknown]

NARRATIVE: CASE EVENT DATE: 2014
